FAERS Safety Report 17099311 (Version 5)
Quarter: 2022Q2

REPORT INFORMATION
  Report Type: Spontaneous
  Country: US (occurrence: US)
  Receive Date: 20191202
  Receipt Date: 20220502
  Transmission Date: 20220721
  Serious: No
  Sender: FDA-Public Use
  Company Number: US-PFIZER INC-2019515443

PATIENT
  Age: 63 Year
  Sex: Female

DRUGS (1)
  1. LYRICA [Suspect]
     Active Substance: PREGABALIN
     Dosage: 150 MG, 2X/DAY [1 PO BID (TWICE A DAY)]
     Route: 048

REACTIONS (6)
  - Pain [Unknown]
  - Gait disturbance [Unknown]
  - Back pain [Unknown]
  - Agitation [Unknown]
  - Loss of personal independence in daily activities [Unknown]
  - Withdrawal syndrome [Unknown]
